FAERS Safety Report 14934136 (Version 1)
Quarter: 2018Q2

REPORT INFORMATION
  Report Type: Spontaneous
  Country: GB (occurrence: NL)
  Receive Date: 20180524
  Receipt Date: 20180524
  Transmission Date: 20180711
  Serious: Yes (Other)
  Sender: FDA-Public Use
  Company Number: GB-GLENMARK PHARMACEUTICALS-2018GMK035580

PATIENT
  Age: 61 Year
  Sex: Female

DRUGS (1)
  1. LEVOFLOXACIN. [Suspect]
     Active Substance: LEVOFLOXACIN
     Indication: INFECTION
     Dosage: UNK
     Route: 065
     Dates: start: 2014

REACTIONS (5)
  - Fatigue [Unknown]
  - Toxicity to various agents [Unknown]
  - Tendon pain [Unknown]
  - Pain in extremity [Unknown]
  - Depression [Unknown]
